FAERS Safety Report 15002428 (Version 1)
Quarter: 2018Q2

REPORT INFORMATION
  Report Type: Spontaneous
  Country: ES (occurrence: ES)
  Receive Date: 20180612
  Receipt Date: 20180612
  Transmission Date: 20180711
  Serious: Yes (Hospitalization, Other)
  Sender: FDA-Public Use
  Company Number: CHNY2006ES03216

PATIENT
  Age: 49 Year
  Sex: Female

DRUGS (2)
  1. IBUPROFEN. [Suspect]
     Active Substance: IBUPROFEN
     Indication: NECK PAIN
     Dosage: 400 MG
     Route: 048
  2. IBUPROFEN. [Suspect]
     Active Substance: IBUPROFEN
     Dosage: 1 DF, UNK
     Route: 048

REACTIONS (14)
  - Nausea [Recovered/Resolved]
  - Vomiting [Recovered/Resolved]
  - Brudzinski^s sign [Recovered/Resolved]
  - Pyrexia [Recovered/Resolved]
  - Autoimmune thyroiditis [Unknown]
  - Meningitis aseptic [Recovered/Resolved]
  - Confusional state [Recovered/Resolved]
  - Nystagmus [Recovered/Resolved]
  - Somnolence [Recovered/Resolved]
  - Headache [Recovered/Resolved]
  - Neck pain [Recovered/Resolved]
  - Neutrophilia [Recovered/Resolved]
  - Vertigo [Recovered/Resolved]
  - Nuchal rigidity [Recovered/Resolved]
